FAERS Safety Report 5605779-9 (Version None)
Quarter: 2008Q1

REPORT INFORMATION
  Report Type: 
  Country: None (occurrence: None)
  Receive Date: 20080129
  Receipt Date: 20080118
  Transmission Date: 20080703
  Serious: Yes (Hospitalization)
  Sender: FDA-Public Use
  Company Number: FR-ROCHE-542289

PATIENT
  Age: 74 Year
  Sex: Male

DRUGS (1)
  1. ROCEPHIN [Suspect]
     Indication: DRUG USE FOR UNKNOWN INDICATION
     Dosage: FORM INJECTABLE SOLUTION
     Route: 042
     Dates: start: 20071120, end: 20071130

REACTIONS (2)
  - DIARRHOEA [None]
  - HYPOKALAEMIA [None]
